FAERS Safety Report 13643045 (Version 1)
Quarter: 2017Q2

REPORT INFORMATION
  Report Type: Spontaneous
  Country: DE (occurrence: DE)
  Receive Date: 20170612
  Receipt Date: 20170612
  Transmission Date: 20170830
  Serious: Yes (Death, Life-Threatening, Other)
  Sender: FDA-Public Use
  Company Number: DE-TEVA-774723GER

PATIENT
  Age: 75 Year
  Sex: Female

DRUGS (19)
  1. CLOZAPIN [Suspect]
     Active Substance: CLOZAPINE
     Route: 048
     Dates: start: 20111101, end: 20140501
  2. CLOZAPIN [Suspect]
     Active Substance: CLOZAPINE
     Route: 048
     Dates: start: 20160502, end: 20161213
  3. TORASEMID [Concomitant]
     Active Substance: TORSEMIDE
     Route: 048
     Dates: end: 20170131
  4. VESIKUR [Concomitant]
     Active Substance: SOLIFENACIN SUCCINATE
     Route: 048
     Dates: end: 20170131
  5. ATROVENT [Concomitant]
     Active Substance: IPRATROPIUM BROMIDE
     Dates: start: 20170129, end: 20170131
  6. CLOZAPIN [Suspect]
     Active Substance: CLOZAPINE
     Route: 048
     Dates: start: 20170105, end: 20170126
  7. RANEXA [Concomitant]
     Active Substance: RANOLAZINE
     Route: 048
     Dates: end: 20170131
  8. ACETYLCYSTEIN [Concomitant]
     Active Substance: ACETYLCYSTEINE
     Route: 048
     Dates: start: 20170129, end: 20170131
  9. LAMOTRIGIN [Concomitant]
     Active Substance: LAMOTRIGINE
     Route: 048
     Dates: end: 20170131
  10. L-THYROXIN [Concomitant]
     Active Substance: LEVOTHYROXINE SODIUM
     Route: 048
     Dates: end: 20170131
  11. CLOZAPIN [Suspect]
     Active Substance: CLOZAPINE
     Route: 048
     Dates: start: 20140502, end: 20160501
  12. SIFROL [Concomitant]
     Active Substance: PRAMIPEXOLE
     Route: 048
     Dates: end: 20170131
  13. ACETYLSALICYLSAEURE [Concomitant]
     Active Substance: ASPIRIN
     Route: 048
     Dates: end: 20170131
  14. SIMVASTATIN. [Concomitant]
     Active Substance: SIMVASTATIN
     Route: 048
     Dates: end: 20170131
  15. BERODUAL SPRAY [Concomitant]
     Dates: end: 20170131
  16. SALBUTAMOL [Concomitant]
     Active Substance: ALBUTEROL
     Dates: start: 20170129, end: 20170131
  17. CLOZAPIN [Suspect]
     Active Substance: CLOZAPINE
     Route: 048
     Dates: start: 20170127, end: 20170131
  18. RAMIPRIL. [Concomitant]
     Active Substance: RAMIPRIL
     Route: 048
     Dates: end: 20170131
  19. CLOZAPIN [Suspect]
     Active Substance: CLOZAPINE
     Route: 048
     Dates: start: 20161214, end: 20170104

REACTIONS (1)
  - Death [Fatal]

NARRATIVE: CASE EVENT DATE: 20170131
